FAERS Safety Report 6219363-X (Version None)
Quarter: 2009Q2

REPORT INFORMATION
  Report Type: 
  Country: None (occurrence: None)
  Receive Date: 20090605
  Receipt Date: 20090605
  Transmission Date: 20091009
  Serious: No
  Sender: FDA-Public Use
  Company Number: None

PATIENT
  Age: 43 Year
  Sex: Male
  Weight: 114.76 kg

DRUGS (1)
  1. SEROQUEL [Suspect]
     Indication: BIPOLAR DISORDER
     Dosage: ONE TABLET ONEE NIGHTLY PO
     Route: 048
     Dates: start: 20071119, end: 20090412

REACTIONS (4)
  - CONVULSION [None]
  - HAEMATEMESIS [None]
  - RASH [None]
  - URTICARIA [None]
